FAERS Safety Report 19816271 (Version 1)
Quarter: 2021Q3

REPORT INFORMATION
  Report Type: Spontaneous
  Country: SE (occurrence: SE)
  Receive Date: 20210909
  Receipt Date: 20210909
  Transmission Date: 20211014
  Serious: Yes (Life-Threatening, Hospitalization, Other)
  Sender: FDA-Public Use
  Company Number: SE-B.I. PHARMACEUTICALS,INC./RIDGEFIELD-2021-BI-125978

PATIENT
  Age: 31 Year
  Sex: Male
  Weight: 99 kg

DRUGS (7)
  1. STESOLID [Concomitant]
     Active Substance: DIAZEPAM
     Indication: PRODUCT USED FOR UNKNOWN INDICATION
     Dates: start: 20210812, end: 20210813
  2. ALIMEMAZIN ORIFARM [Concomitant]
     Indication: PRODUCT USED FOR UNKNOWN INDICATION
     Dosage: DOSE: 40 MG/ML 0,5?2 ML VID BEHOV MAX 3 ML/DYGN
     Route: 048
     Dates: start: 20210812, end: 20210813
  3. ARKOLAMYL [Suspect]
     Active Substance: OLANZAPINE
     Indication: PSYCHOTIC DISORDER
     Dates: start: 20210812, end: 20210813
  4. CATAPRESAN [Suspect]
     Active Substance: CLONIDINE
     Indication: DRUG WITHDRAWAL SYNDROME
     Dates: start: 20210810, end: 20210817
  5. ERGENYL [Suspect]
     Active Substance: VALPROIC ACID
     Indication: EPILEPSY
     Dates: start: 20210812, end: 20210812
  6. IBUPROFEN ACTAVIS [Concomitant]
     Active Substance: IBUPROFEN
     Indication: PRODUCT USED FOR UNKNOWN INDICATION
     Dates: start: 20210812, end: 20210813
  7. PHENERGAN [Concomitant]
     Active Substance: PROMETHAZINE HYDROCHLORIDE
     Indication: PRODUCT USED FOR UNKNOWN INDICATION
     Dates: start: 20210812, end: 20210813

REACTIONS (4)
  - Brain stem syndrome [Not Recovered/Not Resolved]
  - Encephalitis toxic [Not Recovered/Not Resolved]
  - Ammonia increased [Not Recovered/Not Resolved]
  - Myoglobin blood increased [Not Recovered/Not Resolved]

NARRATIVE: CASE EVENT DATE: 20210812
